FAERS Safety Report 23358978 (Version 1)
Quarter: 2024Q1

REPORT INFORMATION
  Report Type: Spontaneous
  Country: CN (occurrence: CN)
  Receive Date: 20240102
  Receipt Date: 20240102
  Transmission Date: 20240409
  Serious: Yes (Hospitalization)
  Sender: FDA-Public Use
  Company Number: CN-PFIZER INC-PV202300208080

PATIENT
  Age: 43 Year
  Sex: Female

DRUGS (1)
  1. METHOTREXATE SODIUM [Suspect]
     Active Substance: METHOTREXATE SODIUM
     Indication: Ectopic pregnancy
     Dosage: 77 MG, ALTERNATE DAY
     Route: 030
     Dates: start: 20231205, end: 20231211

REACTIONS (7)
  - Mouth ulceration [Unknown]
  - Rash [Unknown]
  - Blood blister [Unknown]
  - Dermatitis bullous [Unknown]
  - Rash pruritic [Unknown]
  - Purpura [Unknown]
  - Off label use [Unknown]

NARRATIVE: CASE EVENT DATE: 20231205
